FAERS Safety Report 16050986 (Version 3)
Quarter: 2019Q2

REPORT INFORMATION
  Report Type: Spontaneous
  Country: DE (occurrence: DE)
  Receive Date: 20190308
  Receipt Date: 20190612
  Transmission Date: 20190711
  Serious: Yes (Death, Life-Threatening, Other)
  Sender: FDA-Public Use
  Company Number: DE-AUROBINDO-AUR-APL-2019-011749

PATIENT

DRUGS (5)
  1. SERTRALINE [Suspect]
     Active Substance: SERTRALINE HYDROCHLORIDE
     Indication: DEPRESSION
     Dosage: 50 MILLIGRAM, ONCE A DAY (DAILY DOSE: 50 MG MILLGRAM(S) EVERY DAYS)
     Route: 048
     Dates: end: 20190201
  2. PANTOPRAZOL [Concomitant]
     Active Substance: PANTOPRAZOLE SODIUM
     Indication: DECREASED APPETITE
     Dosage: 80 MILLIGRAM, EVERY HOUR (DAILY DOSE: 80 MG MILLGRAM(S) EVERY HOURS)
     Route: 048
     Dates: start: 20190125
  3. VANCOMYCIN [Concomitant]
     Active Substance: VANCOMYCIN
     Indication: GASTROENTERITIS CLOSTRIDIAL
     Dosage: 1000 MILLIGRAM, ONCE A DAY (DAILY DOSE: 1000 MG MILLGRAM(S) EVERY DAYS)
     Route: 048
     Dates: start: 20190205, end: 20190208
  4. OLICLINOMEL [Concomitant]
     Active Substance: AMINO ACIDS\DEXTROSE\ELECTROLYTES NOS\SOYBEAN OIL
     Indication: DIET REFUSAL
     Dosage: 2000 MILLILITER, ONCE A DAY DAILY DOSE: 2000 ML MILLILITRE(S) EVERY DAYS
     Route: 042
  5. BISOPROLOL [Concomitant]
     Active Substance: BISOPROLOL
     Indication: PRODUCT USED FOR UNKNOWN INDICATION
     Dosage: 5 MILLIGRAM, ONCE A DAY (DAILY DOSE: 5 MG MILLGRAM(S) EVERY DAYS)
     Route: 048

REACTIONS (3)
  - Thrombocytopenia [Fatal]
  - Immune thrombocytopenic purpura [Fatal]
  - Leukopenia [Fatal]

NARRATIVE: CASE EVENT DATE: 20190201
